FAERS Safety Report 4879571-7 (Version None)
Quarter: 2006Q1

REPORT INFORMATION
  Report Type: 
  Country: None (occurrence: None)
  Receive Date: 20060113
  Receipt Date: 20060104
  Transmission Date: 20060701
  Serious: Yes (Hospitalization)
  Sender: FDA-Public Use
  Company Number: US-AMGEN-US163550

PATIENT
  Age: 65 Year
  Sex: Female

DRUGS (10)
  1. NEULASTA [Suspect]
     Indication: CHEMOTHERAPY
     Dates: start: 20050101
  2. TAXOTERE [Concomitant]
  3. CARBOPLATIN [Concomitant]
  4. HERCEPTIN [Concomitant]
  5. COMPAZINE [Concomitant]
  6. DECADRON [Concomitant]
  7. ATIVAN [Concomitant]
  8. DIOVAN [Concomitant]
     Dates: end: 20051226
  9. AVANDIA [Concomitant]
  10. ECOTRIN [Concomitant]

REACTIONS (2)
  - DIALYSIS [None]
  - RENAL FAILURE [None]
